FAERS Safety Report 9156576 (Version 2)
Quarter: 2013Q2

REPORT INFORMATION
  Report Type: Spontaneous
  Country: US (occurrence: None)
  Receive Date: 20130208
  Receipt Date: 20130405
  Transmission Date: 20140414
  Serious: Yes (Hospitalization)
  Sender: FDA-Public Use
  Company Number: IPC201301-000037

PATIENT
  Age: 64 Year
  Sex: Female
  Weight: 77.2 kg

DRUGS (5)
  1. STUDY DRUG NOT ADMINISTERED [Suspect]
     Indication: PRODUCT USED FOR UNKNOWN INDICATION
  2. RANITIDINE [Concomitant]
     Indication: PRODUCT USED FOR UNKNOWN INDICATION
  3. ESTRACE [Concomitant]
     Indication: PRODUCT USED FOR UNKNOWN INDICATION
     Dosage: APPLIED ON MONDAYS
  4. ENJUVIA [Concomitant]
     Indication: PRODUCT USED FOR UNKNOWN INDICATION
     Dosage: 1 IN 1 DAY
     Route: 048
  5. HYDROCHLOROTHIAZIDE [Concomitant]

REACTIONS (6)
  - Upper respiratory tract infection [None]
  - Urinary tract infection [None]
  - Leukocytosis [None]
  - Electrocardiogram T wave inversion [None]
  - Sinus tachycardia [None]
  - Influenza like illness [None]
